FAERS Safety Report 15780702 (Version 3)
Quarter: 2019Q4

REPORT INFORMATION
  Report Type: Report from Study
  Country: US (occurrence: US)
  Receive Date: 20190102
  Receipt Date: 20191210
  Transmission Date: 20200122
  Serious: Yes (Death, Other)
  Sender: FDA-Public Use
  Company Number: US-ASTELLAS-2019US000016

PATIENT
  Sex: Male

DRUGS (1)
  1. ENZALUTAMIDE [Suspect]
     Active Substance: ENZALUTAMIDE
     Indication: HORMONE-REFRACTORY PROSTATE CANCER
     Route: 048

REACTIONS (8)
  - Dizziness postural [Unknown]
  - Death [Fatal]
  - Hyperhidrosis [Unknown]
  - Product size issue [Unknown]
  - Product use complaint [Unknown]
  - Choking [Unknown]
  - Diarrhoea [Unknown]
  - Fatigue [Unknown]
